FAERS Safety Report 4851750-4 (Version None)
Quarter: 2005Q4

REPORT INFORMATION
  Report Type: 
  Country: None (occurrence: None)
  Receive Date: 20051209
  Receipt Date: 20051128
  Transmission Date: 20060501
  Serious: Yes (Other)
  Sender: FDA-Public Use
  Company Number: 2005RL000189

PATIENT
  Age: 68 Year
  Sex: Male

DRUGS (4)
  1. OMACOR [Suspect]
     Indication: HYPERLIPIDAEMIA
     Dosage: 1 GM; QD; PO
     Route: 048
     Dates: start: 20051014, end: 20051017
  2. BELOC ZOK [Concomitant]
  3. ASPIRIN [Concomitant]
  4. SINVOSTETIN [Concomitant]

REACTIONS (2)
  - FEELING HOT [None]
  - VERTIGO [None]
